FAERS Safety Report 20414599 (Version 4)
Quarter: 2024Q4

REPORT INFORMATION
  Report Type: Report from Study
  Country: JP (occurrence: JP)
  Receive Date: 20220202
  Receipt Date: 20241203
  Transmission Date: 20250115
  Serious: Yes (Hospitalization, Other)
  Sender: ROCHE
  Company Number: JP-CHUGAI-2022001807AA

PATIENT
  Age: 62 Year
  Sex: Female
  Weight: 43.8 kg

DRUGS (10)
  1. ENSPRYNG [Suspect]
     Active Substance: SATRALIZUMAB-MWGE
     Indication: Neuromyelitis optica spectrum disorder
     Route: 058
     Dates: start: 20210316, end: 20210416
  2. ENSPRYNG [Suspect]
     Active Substance: SATRALIZUMAB-MWGE
     Route: 058
     Dates: start: 20210514, end: 20230609
  3. PREDONINE [Suspect]
     Active Substance: PREDNISOLONE
     Indication: Neuromyelitis optica spectrum disorder
     Route: 048
     Dates: start: 20210316
  4. PREDONINE [Suspect]
     Active Substance: PREDNISOLONE
     Dosage: 8MG/DAY
     Route: 048
     Dates: start: 2021
  5. PREDONINE [Suspect]
     Active Substance: PREDNISOLONE
     Route: 065
  6. PREDONINE [Suspect]
     Active Substance: PREDNISOLONE
     Route: 065
  7. PREDONINE [Suspect]
     Active Substance: PREDNISOLONE
     Dosage: ON 16/SEP/2023, SHE RECEIVED MOST RECENT DOSE OF PREDNISOLONE.
     Route: 065
  8. TACROLIMUS [Suspect]
     Active Substance: TACROLIMUS
     Indication: Neuromyelitis optica spectrum disorder
     Route: 065
  9. TACROLIMUS [Suspect]
     Active Substance: TACROLIMUS
     Dosage: ON 16/SEP/2023, SHE RECEIVED MOST RECENT DOSE OF TACROLIMUS MONOHYDRATE.
     Route: 065
  10. MODERNA COVID-19 VACCINE [Suspect]
     Active Substance: ELASOMERAN
     Indication: Product used for unknown indication
     Dosage: UNK
     Route: 065

REACTIONS (6)
  - Malaise [Recovering/Resolving]
  - Chest pain [Recovered/Resolved]
  - High density lipoprotein increased [Not Recovered/Not Resolved]
  - Low density lipoprotein increased [Not Recovered/Not Resolved]
  - Urinary tract infection [Recovered/Resolved]
  - Muscular weakness [Recovered/Resolved]

NARRATIVE: CASE EVENT DATE: 20210316
